FAERS Safety Report 10620110 (Version 4)
Quarter: 2014Q4

REPORT INFORMATION
  Report Type: Report from Study
  Country: FR (occurrence: FR)
  Receive Date: 20141202
  Receipt Date: 20141226
  Transmission Date: 20150529
  Serious: Yes (Life-Threatening, Hospitalization)
  Sender: FDA-Public Use
  Company Number: FR-B.I. PHARMACEUTICALS,INC./RIDGEFIELD-2014-BI-28262II

PATIENT
  Age: 70 Year
  Sex: Female

DRUGS (13)
  1. PACLITAXEL. [Suspect]
     Active Substance: PACLITAXEL
     Dosage: 135 MG
     Route: 042
     Dates: start: 20140703
  2. PACLITAXEL. [Suspect]
     Active Substance: PACLITAXEL
     Dosage: DOSE: 198 MG/M2
     Route: 065
     Dates: end: 20140918
  3. CARBOPLATINE [Suspect]
     Active Substance: CARBOPLATIN
     Dosage: 265 MG
     Route: 065
     Dates: end: 20141016
  4. BIBF 1120 [Suspect]
     Active Substance: NINTEDANIB
     Indication: OVARIAN CANCER
     Dosage: 400 MG
     Route: 048
     Dates: start: 20140603, end: 20140622
  5. CARBOPLATINE [Suspect]
     Active Substance: CARBOPLATIN
     Indication: OVARIAN CANCER
     Dosage: 350 MG
     Route: 042
     Dates: start: 20140602, end: 20140724
  6. CARBOPLATINE [Suspect]
     Active Substance: CARBOPLATIN
     Dosage: 265 MG
     Route: 065
     Dates: end: 20140918
  7. CARBOPLATINE [Suspect]
     Active Substance: CARBOPLATIN
     Dosage: 350 MG
     Route: 042
     Dates: end: 20140814
  8. CARBOPLATINE [Suspect]
     Active Substance: CARBOPLATIN
     Dosage: DOSE WAS DECREASED AT A DOSE OF AREA UNDER CURVE (AUC) 4
     Route: 042
     Dates: start: 20140828
  9. PACLITAXEL. [Suspect]
     Active Substance: PACLITAXEL
     Dosage: 204 MG
     Route: 042
     Dates: end: 20140814
  10. BIBF 1120 [Suspect]
     Active Substance: NINTEDANIB
     Dosage: 200 MG
     Route: 048
     Dates: end: 20141016
  11. PACLITAXEL. [Suspect]
     Active Substance: PACLITAXEL
     Dosage: DOSE: 198 MG/M2
     Route: 065
     Dates: end: 20141016
  12. BIBF 1120 [Suspect]
     Active Substance: NINTEDANIB
     Dosage: 200 MG
     Route: 048
     Dates: start: 20140710, end: 20140723
  13. PACLITAXEL. [Suspect]
     Active Substance: PACLITAXEL
     Indication: OVARIAN CANCER
     Dosage: 204 MG
     Route: 042
     Dates: start: 20140602, end: 20140724

REACTIONS (6)
  - Anaemia [Unknown]
  - Gastric disorder [Unknown]
  - Neutropenia [Recovered/Resolved]
  - Vascular occlusion [Recovered/Resolved]
  - Thrombocytopenia [Recovered/Resolved]
  - Rash [Unknown]

NARRATIVE: CASE EVENT DATE: 20140611
